FAERS Safety Report 6473197-X (Version None)
Quarter: 2009Q4

REPORT INFORMATION
  Report Type: 
  Country: None (occurrence: None)
  Receive Date: 20091204
  Receipt Date: 20080818
  Transmission Date: 20100525
  Serious: Yes (Hospitalization)
  Sender: FDA-Public Use
  Company Number: FR-ELI_LILLY_AND_COMPANY-FR200805002455

PATIENT
  Age: 86 Year
  Sex: Female

DRUGS (5)
  1. FORTEO [Suspect]
     Indication: OSTEOPOROSIS
     Dosage: 20 UG, DAILY (1/D)
     Route: 058
     Dates: start: 20070518
  2. VASTAREL [Concomitant]
     Indication: VENOUS INSUFFICIENCY
     Dosage: UNK, UNKNOWN
     Route: 065
  3. FIXICAL D3 [Concomitant]
     Indication: OSTEOPOROSIS
     Dosage: UNK, UNKNOWN
     Route: 065
  4. PIASCLEDINE /01305801/ [Concomitant]
     Dosage: UNK, UNKNOWN
     Route: 065
  5. CELEBREX [Concomitant]
     Dosage: UNK, UNKNOWN
     Route: 065

REACTIONS (1)
  - OSTEOARTHRITIS [None]
